FAERS Safety Report 6958869-2 (Version None)
Quarter: 2010Q3

REPORT INFORMATION
  Report Type: 
  Country: None (occurrence: None)
  Receive Date: 20100831
  Receipt Date: 20100809
  Transmission Date: 20110219
  Serious: Yes (Other)
  Sender: FDA-Public Use
  Company Number: US-BAYER-200936855NA

PATIENT
  Age: 38 Year
  Sex: Female

DRUGS (2)
  1. BETASERON [Suspect]
     Indication: MULTIPLE SCLEROSIS
     Dosage: BETAJECT
     Route: 058
     Dates: start: 20090515, end: 20090803
  2. BETASERON [Suspect]
     Route: 058
     Dates: start: 19940219, end: 20070416

REACTIONS (4)
  - BLEEDING PERIPARTUM [None]
  - PREGNANCY [None]
  - PREMATURE BABY [None]
  - UTERINE RUPTURE [None]
